FAERS Safety Report 6962485-6 (Version None)
Quarter: 2010Q3

REPORT INFORMATION
  Report Type: 
  Country: None (occurrence: None)
  Receive Date: 20100831
  Receipt Date: 20100817
  Transmission Date: 20110219
  Serious: Yes (Death)
  Sender: FDA-Public Use
  Company Number: 017397

PATIENT
  Sex: Female

DRUGS (1)
  1. CIMZIA [Suspect]
     Indication: CROHN'S DISEASE
     Dosage: 400 MG 1X/4WEEKS SUBCUTANEOUS
     Route: 058
     Dates: start: 20100301, end: 20100709

REACTIONS (9)
  - CYANOSIS [None]
  - FATIGUE [None]
  - HYPOAESTHESIA [None]
  - MULTI-ORGAN FAILURE [None]
  - MUSCULOSKELETAL PAIN [None]
  - PAIN [None]
  - PNEUMONIA [None]
  - SEPTIC SHOCK [None]
  - STAPHYLOCOCCAL INFECTION [None]
